FAERS Safety Report 20884700 (Version 2)
Quarter: 2022Q3

REPORT INFORMATION
  Report Type: Spontaneous
  Country: US (occurrence: US)
  Receive Date: 20220527
  Receipt Date: 20220725
  Transmission Date: 20221027
  Serious: Yes (Other)
  Sender: FDA-Public Use
  Company Number: US-PFIZER INC-202200764901

PATIENT
  Age: 60 Year
  Sex: Male

DRUGS (1)
  1. BOSULIF [Suspect]
     Active Substance: BOSUTINIB MONOHYDRATE
     Dosage: 400 MG, 1X/DAY (400MG ONCE DAILY)
     Route: 048
     Dates: start: 20211019

REACTIONS (2)
  - Leg amputation [Recovered/Resolved with Sequelae]
  - Nausea [Not Recovered/Not Resolved]
